FAERS Safety Report 8912731 (Version 4)
Quarter: 2013Q1

REPORT INFORMATION
  Report Type: Report from Study
  Country: HU (occurrence: HU)
  Receive Date: 20121116
  Receipt Date: 20130208
  Transmission Date: 20140127
  Serious: Yes (Death, Hospitalization)
  Sender: FDA-Public Use
  Company Number: HU-PFIZER INC-2012283066

PATIENT
  Age: 61 Year
  Sex: Female
  Weight: 92 kg

DRUGS (10)
  1. IRINOTECAN HCL [Suspect]
     Indication: COLORECTAL CANCER METASTATIC
     Dosage: 180 MG/M2, ON DAY ONE EVERY 14 DAYS
     Route: 042
     Dates: start: 20121029, end: 20121030
  2. FLUOROURACIL [Suspect]
     Indication: COLORECTAL CANCER METASTATIC
     Dosage: UNK
     Dates: start: 20111228, end: 20120715
  3. FLUOROURACIL [Suspect]
     Dosage: 400 MG/M2, ON DAY ONE EVERY 14 DAYS
     Route: 040
     Dates: start: 20121029, end: 20121030
  4. FLUOROURACIL [Suspect]
     Dosage: 2400 MG/M2, ON DAYS ONE AND TWO EVERY 14 DAYS
     Route: 042
     Dates: start: 20121029, end: 20121030
  5. FOLINIC ACID [Suspect]
     Indication: COLORECTAL CANCER METASTATIC
     Dosage: UNK
     Dates: start: 20111228, end: 20120715
  6. FOLINIC ACID [Suspect]
     Dosage: 400 MG/M2, ON DAY ONE EVERY 14 DAYS
     Route: 042
     Dates: start: 20121029, end: 20121030
  7. BLINDED THERAPY [Suspect]
     Indication: COLORECTAL CANCER METASTATIC
     Dosage: UNK
     Route: 042
     Dates: start: 20121029, end: 20121029
  8. CONCOR [Concomitant]
     Indication: HYPERTENSION
     Dosage: UNK
     Dates: start: 2009
  9. VALSARTAN [Concomitant]
     Indication: HYPERTENSION
     Dosage: UNK
     Dates: start: 201111
  10. FUROSEMIDE [Concomitant]
     Indication: HYPERTENSION
     Dosage: UNK
     Dates: start: 201203

REACTIONS (1)
  - Right ventricular failure [Fatal]
